FAERS Safety Report 7736656-5 (Version None)
Quarter: 2011Q3

REPORT INFORMATION
  Report Type: 
  Country: None (occurrence: None)
  Receive Date: 20110908
  Receipt Date: 20110829
  Transmission Date: 20111222
  Serious: Yes (Hospitalization)
  Sender: FDA-Public Use
  Company Number: US-JNJFOC-20110510222

PATIENT
  Sex: Female
  Weight: 41.1 kg

DRUGS (17)
  1. GAS X [Concomitant]
  2. FERROUS SULFATE TAB [Concomitant]
  3. VITAMIN D [Concomitant]
  4. ANTIBIOTICS [Suspect]
     Indication: INFLAMMATORY BOWEL DISEASE
  5. PREDNISONE [Concomitant]
  6. MULTI-VITAMINS [Concomitant]
  7. REMICADE [Suspect]
     Route: 042
     Dates: start: 20090519
  8. PREVACID [Concomitant]
  9. REMICADE [Suspect]
     Indication: COLITIS ULCERATIVE
     Route: 042
     Dates: start: 20110510
  10. MESALAMINE [Suspect]
     Indication: COLITIS ULCERATIVE
     Route: 048
  11. SINGULAIR [Concomitant]
  12. SUDAFED NOS [Concomitant]
  13. PROBIOTICS [Concomitant]
  14. FLUTICASONE PROPIONATE [Concomitant]
     Route: 055
  15. TYLENOL-500 [Concomitant]
  16. BENADRYL [Concomitant]
  17. LACTAID [Concomitant]

REACTIONS (9)
  - TACHYCARDIA [None]
  - HYPOPHAGIA [None]
  - VOMITING [None]
  - HYPONATRAEMIA [None]
  - COXSACKIE VIRUS TEST POSITIVE [None]
  - DISEASE PROGRESSION [None]
  - DEHYDRATION [None]
  - CLOSTRIDIAL INFECTION [None]
  - COLITIS ULCERATIVE [None]
